FAERS Safety Report 12709080 (Version 1)
Quarter: 2016Q3

REPORT INFORMATION
  Report Type: Spontaneous
  Country: US (occurrence: US)
  Receive Date: 20160901
  Receipt Date: 20160901
  Transmission Date: 20161109
  Serious: No
  Sender: FDA-Public Use
  Company Number: US-JAZZ-2016-US-008347

PATIENT
  Sex: Female

DRUGS (18)
  1. MODAFINIL. [Suspect]
     Active Substance: MODAFINIL
     Indication: PRODUCT USED FOR UNKNOWN INDICATION
     Dosage: UNK
     Dates: start: 20151026
  2. FERROUS GLUCONATE [Concomitant]
     Active Substance: FERROUS GLUCONATE
  3. AMBIEN [Concomitant]
     Active Substance: ZOLPIDEM TARTRATE
  4. METHOCARBAMOL. [Concomitant]
     Active Substance: METHOCARBAMOL
  5. VITAMIN D [Concomitant]
     Active Substance: CHOLECALCIFEROL
  6. MELOXICAM. [Concomitant]
     Active Substance: MELOXICAM
  7. PROAIR HFA [Concomitant]
     Active Substance: ALBUTEROL SULFATE
  8. CAFFEINE. [Suspect]
     Active Substance: CAFFEINE
     Indication: PRODUCT USED FOR UNKNOWN INDICATION
  9. LUTEIN [Concomitant]
     Active Substance: LUTEIN
  10. VITAMIN B COMPLEX [Concomitant]
     Active Substance: CYANOCOBALAMIN\DEXPANTHENOL\NIACINAMIDE\PYRIDOXINE HYDROCHLORIDE\RIBOFLAVIN 5^-PHOSPHATE SODIUM\THIAMINE HYDROCHLORIDE\VITAMIN B COMPLEX
  11. SUMATRIPTAN SUCCINATE. [Concomitant]
     Active Substance: SUMATRIPTAN SUCCINATE
  12. CALCIUM +D [Concomitant]
     Active Substance: CALCIUM\VITAMIN D
  13. LISINOPRIL. [Concomitant]
     Active Substance: LISINOPRIL
  14. XYREM [Suspect]
     Active Substance: SODIUM OXYBATE
     Indication: NARCOLEPSY
     Dosage: 2.25 G, BID
     Route: 048
     Dates: start: 201602
  15. ABILIFY [Concomitant]
     Active Substance: ARIPIPRAZOLE
  16. ZOLOFT [Concomitant]
     Active Substance: SERTRALINE HYDROCHLORIDE
  17. GLUCOSAMINE CHONDROITIN [Concomitant]
     Active Substance: CHONDROITIN SULFATE (BOVINE)\GLUCOSAMINE HYDROCHLORIDE
  18. FISH OIL CONCENTRATE [Concomitant]

REACTIONS (6)
  - Muscle spasms [Not Recovered/Not Resolved]
  - Therapeutic response unexpected [Unknown]
  - Palpitations [Recovering/Resolving]
  - Unevaluable event [Not Recovered/Not Resolved]
  - Blood pressure fluctuation [Unknown]
  - Pre-existing condition improved [Unknown]
